FAERS Safety Report 12958336 (Version 1)
Quarter: 2016Q4

REPORT INFORMATION
  Report Type: Spontaneous
  Country: US (occurrence: US)
  Receive Date: 20161121
  Receipt Date: 20161121
  Transmission Date: 20170207
  Serious: Yes (Death, Other)
  Sender: FDA-Public Use
  Company Number: US-ORION CORPORATION ORION PHARMA-TREX2016-2291

PATIENT

DRUGS (1)
  1. METHOTREXATE. [Suspect]
     Active Substance: METHOTREXATE
     Route: 048

REACTIONS (4)
  - Sensory loss [Unknown]
  - Death [Fatal]
  - Myelopathy [Unknown]
  - Quadriplegia [Unknown]
